FAERS Safety Report 5875519-7 (Version None)
Quarter: 2008Q3

REPORT INFORMATION
  Report Type: 
  Country: None (occurrence: None)
  Receive Date: 20080909
  Receipt Date: 20080827
  Transmission Date: 20090109
  Serious: Yes (Death)
  Sender: FDA-Public Use
  Company Number: US-ELI_LILLY_AND_COMPANY-US200808006326

PATIENT
  Sex: Male

DRUGS (2)
  1. SYMBYAX [Suspect]
     Indication: BIPOLAR I DISORDER
     Dates: start: 20011004
  2. LITHIUM [Concomitant]

REACTIONS (1)
  - COMPLETED SUICIDE [None]
